FAERS Safety Report 5269618-0 (Version None)
Quarter: 2007Q1

REPORT INFORMATION
  Report Type: 
  Country: None (occurrence: None)
  Receive Date: 20070314
  Receipt Date: 20070226
  Transmission Date: 20070707
  Serious: Yes (Life-Threatening, Hospitalization)
  Sender: FDA-Public Use
  Company Number: DSA_29474_2007

PATIENT
  Age: 37 Year
  Sex: Female

DRUGS (2)
  1. LORAZEPAM [Suspect]
     Dosage: 50 MG ONCE PO
     Route: 048
     Dates: start: 20070225, end: 20070225
  2. STANGYL [Suspect]
     Dosage: DF ONCE PO
     Route: 048
     Dates: start: 20070225, end: 20070225

REACTIONS (5)
  - ELECTROCARDIOGRAM CHANGE [None]
  - MULTIPLE DRUG OVERDOSE [None]
  - SOPOR [None]
  - SUICIDE ATTEMPT [None]
  - TACHYCARDIA [None]
